FAERS Safety Report 25393185 (Version 2)
Quarter: 2025Q3

REPORT INFORMATION
  Report Type: Spontaneous
  Country: US (occurrence: US)
  Receive Date: 20250604
  Receipt Date: 20250814
  Transmission Date: 20251021
  Serious: No
  Sender: STALLERGENES
  Company Number: US-STALCOR-2025-AER-01182

PATIENT
  Age: 13 Year
  Sex: Male

DRUGS (2)
  1. PALFORZIA [Suspect]
     Active Substance: PEANUT
     Indication: Food allergy
     Dosage: REACTIVE DOSE 300MG: MIX CONTENTS OF 1 SACHET WELL WITH SEMISOLID FOOD AS DIRECTED ONCE DAILY AT APP
     Route: 048
  2. PALFORZIA [Suspect]
     Active Substance: PEANUT
     Dosage: THE LAST DISPENSE FOR PALFORZIA 300MG WAS ON 22-MAY-2025. THERAPY COMPLETED.
     Route: 048
     Dates: end: 20250530

REACTIONS (2)
  - Illness [Not Recovered/Not Resolved]
  - Product dose omission issue [Not Recovered/Not Resolved]

NARRATIVE: CASE EVENT DATE: 20250421
